FAERS Safety Report 5122880-7 (Version None)
Quarter: 2006Q4

REPORT INFORMATION
  Report Type: 
  Country: None (occurrence: None)
  Receive Date: 20061009
  Receipt Date: 20061002
  Transmission Date: 20070319
  Serious: Yes (Other)
  Sender: FDA-Public Use
  Company Number: 2006AC01802

PATIENT
  Age: 25 Year
  Sex: Female

DRUGS (7)
  1. BUPIVACAINE [Suspect]
     Indication: EPIDURAL ANAESTHESIA
     Dosage: BOLUS
     Route: 008
  2. BUPIVACAINE [Suspect]
     Route: 008
  3. BUPIVACAINE [Suspect]
     Route: 008
  4. FENTANYL [Suspect]
     Indication: EPIDURAL ANAESTHESIA
     Dosage: BOLUS
     Route: 008
  5. FENTANYL [Suspect]
     Route: 008
  6. FENTANYL [Suspect]
     Route: 008
  7. LIDOCAINE [Concomitant]
     Dosage: TEST DOSE. WITH EPINEPHRINE (5UG/ML)

REACTIONS (4)
  - BLOOD PRESSURE DECREASED [None]
  - DRUG EXPOSURE DURING PREGNANCY [None]
  - HORNER'S SYNDROME [None]
  - TRIGEMINAL PALSY [None]
